FAERS Safety Report 5816691-4 (Version None)
Quarter: 2008Q3

REPORT INFORMATION
  Report Type: 
  Country: None (occurrence: None)
  Receive Date: 20080721
  Receipt Date: 20080114
  Transmission Date: 20090109
  Serious: Yes (Other)
  Sender: FDA-Public Use
  Company Number: US-BRISTOL-MYERS SQUIBB COMPANY-14040364

PATIENT
  Sex: Female

DRUGS (5)
  1. ESTRACE [Suspect]
     Indication: HORMONE THERAPY
     Dates: start: 19950101, end: 20050101
  2. PREMARIN [Suspect]
     Indication: HORMONE THERAPY
     Dates: start: 19950101, end: 20050101
  3. PROVERA [Suspect]
     Indication: HORMONE THERAPY
     Dates: start: 19950101, end: 20050101
  4. PREMPRO [Suspect]
     Indication: HORMONE THERAPY
     Dates: start: 19950101, end: 20050101
  5. CYCRIN [Suspect]
     Indication: HORMONE THERAPY
     Dates: start: 19950101, end: 20050101

REACTIONS (1)
  - BREAST CANCER [None]
